FAERS Safety Report 6107342-2 (Version None)
Quarter: 2009Q1

REPORT INFORMATION
  Report Type: 
  Country: None (occurrence: None)
  Receive Date: 20090309
  Receipt Date: 20090224
  Transmission Date: 20090719
  Serious: Yes (Hospitalization)
  Sender: FDA-Public Use
  Company Number: JP-PFIZER INC-2009177434

PATIENT

DRUGS (1)
  1. SOLANAX [Suspect]

REACTIONS (1)
  - REFLUX OESOPHAGITIS [None]
